FAERS Safety Report 15166107 (Version 1)
Quarter: 2018Q3

REPORT INFORMATION
  Report Type: Report from Study
  Country: GB (occurrence: GB)
  Receive Date: 20180719
  Receipt Date: 20180719
  Transmission Date: 20181010
  Serious: Yes (Other)
  Sender: FDA-Public Use
  Company Number: GB-PFIZER INC-2018283108

PATIENT
  Age: 60 Year
  Sex: Female
  Weight: 85.1 kg

DRUGS (5)
  1. NITROGLYCERIN. [Suspect]
     Active Substance: NITROGLYCERIN
     Dosage: UNK UNK, AS NEEDED
  2. FUROSEMIDE. [Suspect]
     Active Substance: FUROSEMIDE
     Dosage: 40 MG, 1X/DAY
     Route: 048
  3. ENTRESTO [Suspect]
     Active Substance: SACUBITRIL\VALSARTAN
     Indication: CARDIAC FAILURE
     Dosage: 200 MG, TWICE DAILY (97/103 MG)
     Route: 048
     Dates: start: 20180323, end: 20180529
  4. SPIRONOLACTONE. [Suspect]
     Active Substance: SPIRONOLACTONE
     Dosage: 12.5 MG, 1X/DAY
     Route: 048
     Dates: start: 20170921
  5. IVABRADINE [Suspect]
     Active Substance: IVABRADINE
     Dosage: 2.5 MG, 2X/DAY
     Route: 048
     Dates: start: 20170523

REACTIONS (5)
  - Malaise [Unknown]
  - Cough [Unknown]
  - Hypotension [Unknown]
  - Wound secretion [Unknown]
  - Post procedural complication [Unknown]

NARRATIVE: CASE EVENT DATE: 20180525
